FAERS Safety Report 8080188-4 (Version None)
Quarter: 2012Q1

REPORT INFORMATION
  Report Type: 
  Country: None (occurrence: None)
  Receive Date: 20120130
  Receipt Date: 20120123
  Transmission Date: 20120608
  Serious: Yes (Other)
  Sender: FDA-Public Use
  Company Number: US-BAYER-201016337NA

PATIENT
  Age: 51 Year
  Sex: Female
  Weight: 104 kg

DRUGS (7)
  1. YASMIN [Suspect]
     Indication: PRODUCT USED FOR UNKNOWN INDICATION
     Dosage: UNK UNK, UNK
     Route: 048
     Dates: start: 20071201, end: 20080201
  2. NAPROSYN [Concomitant]
     Indication: ANALGESIC THERAPY
  3. DICLOXACILLIN [Concomitant]
     Indication: CELLULITIS
     Dosage: 500 MG, UNK
     Route: 048
     Dates: start: 20080111
  4. ALESSE [Concomitant]
  5. YAZ [Suspect]
     Indication: PRODUCT USED FOR UNKNOWN INDICATION
     Dosage: UNK UNK, UNK
     Route: 048
     Dates: start: 20080201, end: 20080301
  6. ATENOLOL [Concomitant]
     Indication: HYPERTENSION
  7. SEPTRA [Concomitant]
     Indication: CELLULITIS

REACTIONS (1)
  - DEEP VEIN THROMBOSIS [None]
